FAERS Safety Report 11267538 (Version 5)
Quarter: 2016Q1

REPORT INFORMATION
  Report Type: Report from Study
  Country: US (occurrence: US)
  Receive Date: 20150713
  Receipt Date: 20160219
  Transmission Date: 20160525
  Serious: Yes (Other)
  Sender: FDA-Public Use
  Company Number: PHEH2015US012613

PATIENT
  Age: 57 Year
  Sex: Female
  Weight: 50.79 kg

DRUGS (16)
  1. GILENYA [Suspect]
     Active Substance: FINGOLIMOD HYDROCHLORIDE
     Dosage: 0.5 MG, QD
     Route: 048
     Dates: start: 20131004, end: 20150806
  2. CYTOXAN [Concomitant]
     Active Substance: CYCLOPHOSPHAMIDE
     Indication: PRODUCT USED FOR UNKNOWN INDICATION
     Dosage: UNK
     Route: 065
  3. CALCIUM [Concomitant]
     Active Substance: CALCIUM
     Indication: PRODUCT USED FOR UNKNOWN INDICATION
     Dosage: UNK
     Route: 065
  4. ALLEGRA [Concomitant]
     Active Substance: FEXOFENADINE HYDROCHLORIDE
     Indication: PRODUCT USED FOR UNKNOWN INDICATION
     Dosage: UNK
     Route: 065
  5. PRAVASTATIN [Concomitant]
     Active Substance: PRAVASTATIN\PRAVASTATIN SODIUM
     Indication: PRODUCT USED FOR UNKNOWN INDICATION
     Dosage: UNK
     Route: 065
  6. HORIZANT [Concomitant]
     Active Substance: GABAPENTIN ENACARBIL
     Indication: PRODUCT USED FOR UNKNOWN INDICATION
     Dosage: UNK
     Route: 065
  7. ACETAMINOPHEN. [Concomitant]
     Active Substance: ACETAMINOPHEN
     Indication: PRODUCT USED FOR UNKNOWN INDICATION
     Dosage: UNK
     Route: 065
  8. HYDROCODONE [Concomitant]
     Active Substance: HYDROCODONE
     Indication: PRODUCT USED FOR UNKNOWN INDICATION
     Dosage: UNK
     Route: 065
  9. PREDNISONE. [Concomitant]
     Active Substance: PREDNISONE
     Indication: PRODUCT USED FOR UNKNOWN INDICATION
     Dosage: UNK
     Route: 048
  10. GILENYA [Suspect]
     Active Substance: FINGOLIMOD HYDROCHLORIDE
     Dosage: 0.5 MG, QD
     Route: 048
     Dates: start: 20150827
  11. FOLIC ACID. [Concomitant]
     Active Substance: FOLIC ACID
     Indication: PRODUCT USED FOR UNKNOWN INDICATION
     Dosage: UNK
     Route: 065
  12. TOPIRAMATE. [Concomitant]
     Active Substance: TOPIRAMATE
     Indication: PRODUCT USED FOR UNKNOWN INDICATION
     Dosage: UNK
     Route: 065
  13. GILENYA [Suspect]
     Active Substance: FINGOLIMOD HYDROCHLORIDE
     Indication: RELAPSING-REMITTING MULTIPLE SCLEROSIS
     Dosage: 0.5 MG, QD
     Route: 048
     Dates: start: 20110208
  14. VITAMIN B12 [Concomitant]
     Active Substance: CYANOCOBALAMIN
     Indication: PRODUCT USED FOR UNKNOWN INDICATION
     Dosage: UNK
     Route: 065
  15. VITAMIN D3 [Concomitant]
     Active Substance: CHOLECALCIFEROL
     Indication: PRODUCT USED FOR UNKNOWN INDICATION
     Dosage: UNK
     Route: 065
  16. TRAZODONE [Concomitant]
     Active Substance: TRAZODONE HYDROCHLORIDE
     Indication: PRODUCT USED FOR UNKNOWN INDICATION
     Dosage: UNK
     Route: 065

REACTIONS (73)
  - Depressed mood [Unknown]
  - Neurogenic bladder [Unknown]
  - Lumbar spinal stenosis [Unknown]
  - Skin lesion [Unknown]
  - Haematochezia [Unknown]
  - Vitamin D deficiency [Unknown]
  - Rash [Unknown]
  - Pruritus [Unknown]
  - Tremor [Unknown]
  - Bladder disorder [Unknown]
  - Erythema [Unknown]
  - Influenza like illness [Unknown]
  - Tooth disorder [Unknown]
  - Constipation [Unknown]
  - Skin discolouration [Unknown]
  - Flushing [Recovered/Resolved]
  - Weight decreased [Unknown]
  - Restless legs syndrome [Unknown]
  - Nervousness [Unknown]
  - Flushing [Not Recovered/Not Resolved]
  - Hyperhidrosis [Unknown]
  - Blood pressure decreased [Unknown]
  - Tinnitus [Unknown]
  - Ear discomfort [Unknown]
  - Cataract [Unknown]
  - Diplegia [Unknown]
  - Sleep disorder [Unknown]
  - Neuralgia [Unknown]
  - Asthenia [Unknown]
  - Pain in extremity [Unknown]
  - Insomnia [Unknown]
  - Headache [Unknown]
  - Exostosis [Unknown]
  - Dermatitis [Unknown]
  - Crying [Unknown]
  - Cough [Unknown]
  - Multiple sclerosis relapse [Unknown]
  - Musculoskeletal pain [Unknown]
  - Hypoaesthesia [Unknown]
  - Somnolence [Unknown]
  - Musculoskeletal stiffness [Unknown]
  - Spinal pain [Unknown]
  - Motor dysfunction [Unknown]
  - Hypoacusis [Unknown]
  - Arthritis [Unknown]
  - Swelling [Unknown]
  - Chest pain [Unknown]
  - Urticaria [Unknown]
  - Rash pruritic [Unknown]
  - Deafness unilateral [Unknown]
  - Paraesthesia [Recovering/Resolving]
  - Gait disturbance [Unknown]
  - Restlessness [Unknown]
  - Body temperature increased [Unknown]
  - Diarrhoea [Unknown]
  - Pain [Unknown]
  - Arthralgia [Unknown]
  - Fatigue [Unknown]
  - Tearfulness [Unknown]
  - Feeling abnormal [Unknown]
  - Dysuria [Unknown]
  - Anxiety [Unknown]
  - Stress [Unknown]
  - Liver function test abnormal [Recovered/Resolved]
  - Burning sensation [Recovering/Resolving]
  - Muscular weakness [Unknown]
  - Limb discomfort [Unknown]
  - Muscle spasticity [Unknown]
  - Back pain [Unknown]
  - Intervertebral disc degeneration [Unknown]
  - Dry mouth [Unknown]
  - Decreased appetite [Unknown]
  - Micturition urgency [Unknown]

NARRATIVE: CASE EVENT DATE: 2013
